FAERS Safety Report 18016543 (Version 2)
Quarter: 2023Q1

REPORT INFORMATION
  Report Type: Spontaneous
  Country: US (occurrence: US)
  Receive Date: 20200713
  Receipt Date: 20230302
  Transmission Date: 20230417
  Serious: Yes (Other)
  Sender: FDA-Public Use
  Company Number: US-PFIZER INC-2020266748

PATIENT
  Age: 55 Year
  Sex: Female

DRUGS (1)
  1. XELJANZ XR [Suspect]
     Active Substance: TOFACITINIB CITRATE
     Indication: Rheumatoid arthritis
     Dosage: 11 MG, DAILY (EVERYDAY)
     Route: 048
     Dates: start: 201803

REACTIONS (4)
  - Blindness [Unknown]
  - Deafness [Unknown]
  - Pain [Recovering/Resolving]
  - Therapeutic product effect incomplete [Recovering/Resolving]
